FAERS Safety Report 4579749-6 (Version None)
Quarter: 2005Q1

REPORT INFORMATION
  Report Type: 
  Country: None (occurrence: None)
  Receive Date: 20050210
  Receipt Date: 20050126
  Transmission Date: 20050727
  Serious: Yes (Death)
  Sender: FDA-Public Use
  Company Number: 2004AL000731

PATIENT
  Age: 67 Year
  Sex: Male

DRUGS (4)
  1. CLONIDINE HCL [Suspect]
     Dosage: PO
     Route: 048
  2. AMLODIPINE [Suspect]
     Dosage: PO
     Route: 048
  3. DIGOXIN [Suspect]
     Dosage: PO
     Route: 048
  4. HYDROCHLOROTHIAZDE TAB [Suspect]
     Dosage: PO
     Route: 048

REACTIONS (6)
  - BLOOD PH DECREASED [None]
  - CARDIO-RESPIRATORY ARREST [None]
  - COMA [None]
  - COMPLETED SUICIDE [None]
  - HYPOTENSION [None]
  - MULTIPLE DRUG OVERDOSE [None]
